FAERS Safety Report 16564171 (Version 1)
Quarter: 2019Q3

REPORT INFORMATION
  Report Type: Spontaneous
  Country: US (occurrence: US)
  Receive Date: 20190530
  Receipt Date: 20190530
  Transmission Date: 20191004
  Serious: No
  Sender: FDA-Public Use
  Company Number: None

PATIENT
  Age: 57 Year
  Sex: Female

DRUGS (1)
  1. ENBREL [Suspect]
     Active Substance: ETANERCEPT
     Dates: start: 201405

REACTIONS (4)
  - Rheumatoid arthritis [None]
  - Injection site discharge [None]
  - Injection site haemorrhage [None]
  - Incorrect dose administered [None]

NARRATIVE: CASE EVENT DATE: 20190530
